FAERS Safety Report 10880908 (Version 1)
Quarter: 2015Q1

REPORT INFORMATION
  Report Type: Spontaneous
  Country: US (occurrence: None)
  Receive Date: 20150225
  Receipt Date: 20150225
  Transmission Date: 20150721
  Serious: Yes (Hospitalization)
  Sender: FDA-Public Use
  Company Number: None

PATIENT
  Age: 67 Year
  Sex: Male
  Weight: 87.4 kg

DRUGS (1)
  1. NEXAVAR [Suspect]
     Active Substance: SORAFENIB
     Dates: end: 20150214

REACTIONS (9)
  - Condition aggravated [None]
  - Dehydration [None]
  - Weight decreased [None]
  - Azotaemia [None]
  - Hepatic function abnormal [None]
  - Alpha 1 foetoprotein increased [None]
  - Ascites [None]
  - Jaundice [None]
  - Acute kidney injury [None]

NARRATIVE: CASE EVENT DATE: 20150213
